FAERS Safety Report 12190194 (Version 2)
Quarter: 2016Q2

REPORT INFORMATION
  Report Type: Spontaneous
  Country: FR (occurrence: FR)
  Receive Date: 20160318
  Receipt Date: 20160419
  Transmission Date: 20160815
  Serious: Yes (Disabling)
  Sender: FDA-Public Use
  Company Number: FR-ASTRAZENECA-2016SE28202

PATIENT
  Age: 29411 Day
  Sex: Male

DRUGS (6)
  1. ESIDREX [Concomitant]
     Active Substance: HYDROCHLOROTHIAZIDE
  2. SINTROM [Concomitant]
     Active Substance: ACENOCOUMAROL
  3. CRESTOR [Suspect]
     Active Substance: ROSUVASTATIN CALCIUM
     Indication: DYSLIPIDAEMIA
     Route: 048
     Dates: start: 2000, end: 20160213
  4. VAXIGRIP [Suspect]
     Active Substance: INFLUENZA VIRUS VACCINE
     Indication: INFLUENZA IMMUNISATION
     Route: 058
     Dates: start: 20151201, end: 20151201
  5. KARDEGIC [Concomitant]
     Active Substance: ASPIRIN LYSINE
  6. EXFORGE [Concomitant]
     Active Substance: AMLODIPINE BESYLATE\VALSARTAN

REACTIONS (3)
  - Gait disturbance [Not Recovered/Not Resolved]
  - Muscular weakness [Not Recovered/Not Resolved]
  - Drop attacks [Not Recovered/Not Resolved]

NARRATIVE: CASE EVENT DATE: 20151215
